FAERS Safety Report 5535636-8 (Version None)
Quarter: 2007Q4

REPORT INFORMATION
  Report Type: 
  Country: None (occurrence: None)
  Receive Date: 20071206
  Receipt Date: 20061208
  Transmission Date: 20080405
  Serious: Yes (Other)
  Sender: FDA-Public Use
  Company Number: US-AMGEN-US202946

PATIENT
  Sex: Female
  Weight: 101.7 kg

DRUGS (3)
  1. ENBREL [Suspect]
     Indication: RHEUMATOID ARTHRITIS
     Route: 058
     Dates: start: 19990101
  2. ENBREL [Suspect]
     Indication: PSORIATIC ARTHROPATHY
  3. METHOTREXATE [Concomitant]
     Dates: start: 19940101

REACTIONS (7)
  - AUTOIMMUNE HEPATITIS [None]
  - INJECTION SITE BRUISING [None]
  - INJECTION SITE ERYTHEMA [None]
  - INJECTION SITE HAEMATOMA [None]
  - INJECTION SITE IRRITATION [None]
  - NASOPHARYNGITIS [None]
  - SINUSITIS [None]
